FAERS Safety Report 15171367 (Version 3)
Quarter: 2018Q4

REPORT INFORMATION
  Report Type: Spontaneous
  Country: US (occurrence: US)
  Receive Date: 20180720
  Receipt Date: 20181106
  Transmission Date: 20190204
  Serious: Yes (Other)
  Sender: FDA-Public Use
  Company Number: PHHY2018US043533

PATIENT
  Age: 36 Year
  Sex: Female

DRUGS (2)
  1. PROGESTERONE. [Suspect]
     Active Substance: PROGESTERONE
     Indication: IN VITRO FERTILISATION
     Dosage: 100 MG, QD
     Route: 030
  2. ESTRADIOL. [Suspect]
     Active Substance: ESTRADIOL
     Indication: IN VITRO FERTILISATION
     Dosage: 2 MG, BID
     Route: 048

REACTIONS (6)
  - Concomitant disease aggravated [Recovered/Resolved]
  - Drug hypersensitivity [Unknown]
  - Maternal exposure during pregnancy [Unknown]
  - Xanthoma [Recovered/Resolved]
  - Hypertriglyceridaemia [Recovered/Resolved]
  - Rash [Unknown]
